FAERS Safety Report 13012892 (Version 1)
Quarter: 2016Q4

REPORT INFORMATION
  Report Type: Spontaneous
  Country: US (occurrence: US)
  Receive Date: 20161208
  Receipt Date: 20161208
  Transmission Date: 20170207
  Serious: Yes (Death)
  Sender: FDA-Public Use
  Company Number: None

PATIENT
  Age: 55 Year

DRUGS (14)
  1. LOTRISONE [Concomitant]
     Active Substance: BETAMETHASONE DIPROPIONATE\CLOTRIMAZOLE
  2. ENBREL [Suspect]
     Active Substance: ETANERCEPT
     Indication: RHEUMATOID ARTHRITIS
     Dosage: ?          OTHER FREQUENCY:WEEKLY;?
     Route: 058
     Dates: start: 20141008
  3. LISINOPRIL. [Concomitant]
     Active Substance: LISINOPRIL
  4. OMERPRAZOLE [Concomitant]
     Active Substance: OMEPRAZOLE
  5. DULCOLAS [Concomitant]
  6. VITAMIN B-2 [Concomitant]
  7. OYSTER SHELL CALCIUM [Concomitant]
     Active Substance: CALCIUM
  8. NYSTATIN. [Concomitant]
     Active Substance: NYSTATIN
  9. CITALOPRAM HYDROBROMIDE. [Concomitant]
     Active Substance: CITALOPRAM HYDROBROMIDE
  10. VOLTAREN [Concomitant]
     Active Substance: DICLOFENAC SODIUM
  11. PREDNISONE. [Concomitant]
     Active Substance: PREDNISONE
  12. FLUCONAZOLE. [Concomitant]
     Active Substance: FLUCONAZOLE
  13. VANCOCIN [Concomitant]
     Active Substance: VANCOMYCIN HYDROCHLORIDE
  14. FISH OIL [Concomitant]
     Active Substance: FISH OIL

REACTIONS (1)
  - Death [None]

NARRATIVE: CASE EVENT DATE: 20161121
